FAERS Safety Report 7775058 (Version 2)
Quarter: 2012Q4

REPORT INFORMATION
  Report Type: 
  Country: CA (occurrence: CA)
  Receive Date: 20110126
  Receipt Date: 20121109
  Transmission Date: 20130627
  Serious: Yes (Other)
  Sender: FDA-Public Use
  Company Number: PHHY2005CA02210

PATIENT
  Sex: Female

DRUGS (6)
  1. SANDOSTATIN LAR [Suspect]
     Indication: NEUROENDOCRINE TUMOUR
     Dosage: 20 mg, every 4 weeks
     Dates: start: 20050414
  2. ASAPHEN [Concomitant]
  3. CALCIUM [Concomitant]
  4. COZAAR [Concomitant]
  5. FOSAMAX [Concomitant]
  6. PANTOLOC [Concomitant]

REACTIONS (7)
  - Lung neoplasm [Unknown]
  - Fatigue [Unknown]
  - Hyperglycaemia [Unknown]
  - Abdominal pain [Unknown]
  - Constipation [Unknown]
  - Asthenia [Unknown]
  - Heart rate decreased [Unknown]
